FAERS Safety Report 4414760-7 (Version None)
Quarter: 2004Q3

REPORT INFORMATION
  Report Type: 
  Country: None (occurrence: None)
  Receive Date: 20040804
  Receipt Date: 20030825
  Transmission Date: 20050211
  Serious: No
  Sender: FDA-Public Use
  Company Number: US-BRISTOL-MYERS SQUIBB COMPANY-12365078

PATIENT
  Age: 61 Year
  Sex: Female
  Weight: 556 kg

DRUGS (17)
  1. GLUCOVANCE [Suspect]
     Indication: DIABETES MELLITUS
     Route: 048
  2. LANTUS [Concomitant]
  3. PRAVACHOL [Concomitant]
  4. TRICOR [Concomitant]
  5. SYNTHROID [Concomitant]
  6. POTASSIUM CHLORIDE [Concomitant]
  7. FUROSEMIDE [Concomitant]
  8. LOPRESSOR [Concomitant]
  9. QUININE SULFATE [Concomitant]
  10. LORAZEPAM [Concomitant]
  11. DIOVAN [Concomitant]
  12. ACTONEL [Concomitant]
  13. COSOPT [Concomitant]
     Dosage: 1 GGT TWICE DAILY IN RIGHT EYE
  14. MULTI-VITAMIN [Concomitant]
  15. MAGNESIUM [Concomitant]
  16. CALCIUM [Concomitant]
  17. COENZYME [Concomitant]

REACTIONS (6)
  - ABDOMINAL DISTENSION [None]
  - ABDOMINAL PAIN UPPER [None]
  - BLOOD GLUCOSE DECREASED [None]
  - DIARRHOEA [None]
  - FLATULENCE [None]
  - NAUSEA [None]
